FAERS Safety Report 10053295 (Version 1)
Quarter: 2014Q2

REPORT INFORMATION
  Report Type: Spontaneous
  Country: FR (occurrence: FR)
  Receive Date: 20140402
  Receipt Date: 20140402
  Transmission Date: 20141212
  Serious: Yes (Other)
  Sender: FDA-Public Use
  Company Number: PHHY2014FR037000

PATIENT
  Age: 50 Year
  Sex: Female

DRUGS (4)
  1. AFINITOR [Suspect]
     Dates: start: 20140115
  2. ALTEISDUO [Concomitant]
  3. NEBIVOLOL [Concomitant]
  4. DOMPERIDONE [Concomitant]

REACTIONS (1)
  - Blister [Recovered/Resolved]
